FAERS Safety Report 10190139 (Version 2)
Quarter: 2014Q2

REPORT INFORMATION
  Report Type: Spontaneous
  Country: US (occurrence: US)
  Receive Date: 20140522
  Receipt Date: 20140522
  Transmission Date: 20141212
  Serious: No
  Sender: FDA-Public Use
  Company Number: US-ASTRAZENECA-2013SE84495

PATIENT
  Age: 55 Year
  Sex: Female

DRUGS (4)
  1. PULMICORT FLEXHALER [Suspect]
     Indication: ASTHMA
     Dosage: 180 MCG, ONE PUFF TWO TIMES A  DAY
     Route: 055
     Dates: start: 20131107
  2. TRIMOX [Suspect]
     Route: 065
  3. SULFA MEDICATIONS [Suspect]
     Route: 065
  4. MACROLIDES/KETOLIDES [Suspect]
     Route: 065

REACTIONS (4)
  - Asthma [Not Recovered/Not Resolved]
  - Drug hypersensitivity [Not Recovered/Not Resolved]
  - Drug hypersensitivity [Not Recovered/Not Resolved]
  - Off label use [Unknown]
